FAERS Safety Report 6355143-2 (Version None)
Quarter: 2009Q3

REPORT INFORMATION
  Report Type: 
  Country: None (occurrence: None)
  Receive Date: 20090914
  Receipt Date: 20090911
  Transmission Date: 20100115
  Serious: Yes (Hospitalization, Other)
  Sender: FDA-Public Use
  Company Number: US-RB-020282-09

PATIENT
  Age: 32 Year
  Sex: Male

DRUGS (1)
  1. SUBOXONE [Suspect]
     Dosage: DOSING INFORMATION UNKNOWN.
     Route: 060
     Dates: start: 20090701

REACTIONS (6)
  - ANXIETY [None]
  - HALLUCINATION, AUDITORY [None]
  - HEADACHE [None]
  - HYPERHIDROSIS [None]
  - MAJOR DEPRESSION [None]
  - NAUSEA [None]
